FAERS Safety Report 6317709-5 (Version None)
Quarter: 2009Q3

REPORT INFORMATION
  Report Type: 
  Country: None (occurrence: None)
  Receive Date: 20090821
  Receipt Date: 20090813
  Transmission Date: 20100115
  Serious: Yes (Hospitalization, Other)
  Sender: FDA-Public Use
  Company Number: BR-ROXANE LABORATORIES, INC.-2009-RO-00821RO

PATIENT
  Age: 52 Year
  Sex: Male

DRUGS (3)
  1. PREDNISONE [Suspect]
     Indication: PEMPHIGOID
  2. AZATHIOPRINE [Suspect]
     Indication: PEMPHIGOID
  3. CYCLOPHOSPHAMIDE [Suspect]
     Indication: PEMPHIGOID

REACTIONS (11)
  - ADHESION [None]
  - BRAIN ABSCESS [None]
  - CATARACT [None]
  - DRUG INEFFECTIVE [None]
  - HERPES ZOSTER [None]
  - LYMPHADENOPATHY [None]
  - MENINGITIS [None]
  - MULTIPLE FRACTURES [None]
  - PEMPHIGOID [None]
  - SEPSIS [None]
  - VISUAL IMPAIRMENT [None]
